FAERS Safety Report 5301974-7 (Version None)
Quarter: 2007Q2

REPORT INFORMATION
  Report Type: 
  Country: None (occurrence: None)
  Receive Date: 20070419
  Receipt Date: 20070406
  Transmission Date: 20071010
  Serious: Yes (Other)
  Sender: FDA-Public Use
  Company Number: PHEH2007US00678

PATIENT
  Age: 59 Year
  Sex: Male
  Weight: 81.65 kg

DRUGS (14)
  1. JANUVIA [Concomitant]
  2. STARLIX [Suspect]
     Indication: DIABETES MELLITUS
     Dosage: 120 MG, TID
     Route: 048
     Dates: start: 20060602, end: 20061005
  3. STARLIX [Suspect]
     Dosage: 120 MG, BID
     Route: 048
     Dates: start: 20061006, end: 20061222
  4. TRICOR [Concomitant]
  5. TRILEPTAL [Concomitant]
  6. DEPAKOTE [Suspect]
     Indication: CONVULSION
  7. ^HOMOCORE^ [Concomitant]
  8. ^LISCIOL^ [Concomitant]
  9. LANTUS [Suspect]
     Indication: DIABETES MELLITUS
     Dosage: 14 U, QD
     Dates: start: 20060401
  10. LANTUS [Suspect]
     Dosage: 10 U, QD
  11. LANTUS [Suspect]
     Dosage: 8 U, QD
  12. LANTUS [Suspect]
     Dosage: 6 U, QD
     Route: 048
     Dates: start: 20060401
  13. TOPAMAX [Suspect]
     Dosage: 400 MG, QD
     Dates: start: 20060901
  14. ZETIA [Concomitant]

REACTIONS (6)
  - ANOREXIA [None]
  - CONVULSION [None]
  - FATIGUE [None]
  - HYPOGLYCAEMIA [None]
  - MALAISE [None]
  - WEIGHT DECREASED [None]
